FAERS Safety Report 9209529 (Version 1)
Quarter: 2013Q1

REPORT INFORMATION
  Report Type: Spontaneous
  Country: US (occurrence: None)
  Receive Date: 20120820
  Receipt Date: 20120820
  Transmission Date: 20140127
  Serious: No
  Sender: FDA-Public Use
  Company Number: 1000030379

PATIENT
  Age: 41 Year
  Sex: Female

DRUGS (7)
  1. VIIBRYD [Suspect]
     Indication: DEPRESSION
     Dosage: 10 MG (10 MILLIGRAM, TABLETS), ORAL
     Route: 048
     Dates: start: 20111220, end: 20111226
  2. VIIBRYD [Suspect]
     Indication: DEPRESSION
     Dosage: 40 MG (40 MG, 1 IN 1 D), ORAL
     Route: 048
     Dates: start: 20120103, end: 20120223
  3. VIIBRYD [Suspect]
     Indication: DEPRESSION
     Dosage: 20 MG (20MG, 1 IN 1 D), ORAL )
     Route: 048
     Dates: start: 20120224, end: 201203
  4. TOPAMAX (TOPIRAMATE) [Suspect]
     Indication: HEADACHE
     Route: 048
  5. ZOCOR  (SIMVASTATIN) (SIMVASTATIN) [Concomitant]
  6. ATIVAN (LORAZEPAM) (LORAZEPAM) [Concomitant]
  7. DEXILANT (DEXLANSOPRAZOLE) (DEXLANSOPRAZOLE) [Concomitant]

REACTIONS (6)
  - Insomnia [None]
  - Night sweats [None]
  - Muscle twitching [None]
  - Tic [None]
  - Aggression [None]
  - Drug interaction [None]
